FAERS Safety Report 25190382 (Version 3)
Quarter: 2025Q2

REPORT INFORMATION
  Report Type: Spontaneous
  Country: FR (occurrence: FR)
  Receive Date: 20250411
  Receipt Date: 20250620
  Transmission Date: 20250716
  Serious: Yes (Death, Other)
  Sender: OTSUKA
  Company Number: FR-MMM-Otsuka-B40QF3M6

PATIENT
  Age: 50 Year
  Sex: Female

DRUGS (9)
  1. ABILIFY MAINTENA [Suspect]
     Active Substance: ARIPIPRAZOLE
     Indication: Schizoaffective disorder
     Route: 030
     Dates: end: 20250407
  2. ABILIFY MAINTENA [Suspect]
     Active Substance: ARIPIPRAZOLE
     Indication: Schizoaffective disorder
     Route: 065
     Dates: start: 202211, end: 20250312
  3. ABILIFY MAINTENA [Suspect]
     Active Substance: ARIPIPRAZOLE
     Indication: Schizophrenia
  4. CLOZAPINE [Concomitant]
     Active Substance: CLOZAPINE
     Indication: Schizoaffective disorder
     Route: 065
     Dates: start: 202211
  5. CLOZAPINE [Concomitant]
     Active Substance: CLOZAPINE
     Indication: Schizophrenia
     Route: 065
     Dates: start: 202309
  6. CLOZAPINE [Concomitant]
     Active Substance: CLOZAPINE
     Dosage: 100 MG, QD (IN THE MORNING)
     Route: 065
     Dates: start: 20250407
  7. DESOGESTREL [Concomitant]
     Active Substance: DESOGESTREL
     Indication: Oral contraception
     Route: 065
     Dates: start: 2022
  8. TROPATEPINE HYDROCHLORIDE [Concomitant]
     Active Substance: TROPATEPINE HYDROCHLORIDE
     Indication: Extrapyramidal disorder
     Route: 065
  9. DEPAKOTE [Concomitant]
     Active Substance: DIVALPROEX SODIUM
     Indication: Product used for unknown indication
     Route: 065
     Dates: start: 202212, end: 202304

REACTIONS (13)
  - Cardio-respiratory arrest [Fatal]
  - Malaise [Not Recovered/Not Resolved]
  - Hyperprolactinaemia [Unknown]
  - Vitamin B12 increased [Unknown]
  - Vitamin D deficiency [Unknown]
  - Folate deficiency [Unknown]
  - Iron deficiency [Unknown]
  - Lipoma [Unknown]
  - Tic [Unknown]
  - Weight increased [Unknown]
  - Anxiety [Unknown]
  - Product use in unapproved indication [Unknown]
  - Product administered at inappropriate site [Unknown]

NARRATIVE: CASE EVENT DATE: 20221201
